FAERS Safety Report 4856422-8 (Version None)
Quarter: 2005Q4

REPORT INFORMATION
  Report Type: 
  Country: None (occurrence: None)
  Receive Date: 20051219
  Receipt Date: 20050216
  Transmission Date: 20060501
  Serious: No
  Sender: FDA-Public Use
  Company Number: US-GLAXOSMITHKLINE-A0545861A

PATIENT
  Age: 26 Year
  Sex: Male

DRUGS (3)
  1. NICODERM CQ [Suspect]
  2. NICODERM CQ [Suspect]
  3. NICODERM CQ [Suspect]
     Dates: start: 20050216

REACTIONS (4)
  - ABNORMAL DREAMS [None]
  - APPLICATION SITE DERMATITIS [None]
  - NAUSEA [None]
  - NIGHTMARE [None]
